FAERS Safety Report 5024208-X (Version None)
Quarter: 2006Q2

REPORT INFORMATION
  Report Type: 
  Country: None (occurrence: None)
  Receive Date: 20060613
  Receipt Date: 20060531
  Transmission Date: 20061013
  Serious: Yes (Hospitalization, Other)
  Sender: FDA-Public Use
  Company Number: PHBS2006JP08333

PATIENT
  Age: 36 Year

DRUGS (3)
  1. CARBAMAZEPINE [Suspect]
     Indication: LENNOX-GASTAUT SYNDROME
     Dosage: 800 MG/DAY
     Route: 048
  2. SODIUM VALPROATE (NGX) [Suspect]
     Indication: LENNOX-GASTAUT SYNDROME
     Dosage: 1800 MG/DAY
     Route: 048
  3. PHENYTOIN [Suspect]
     Indication: LENNOX-GASTAUT SYNDROME
     Dosage: 240 MG/DAY
     Route: 048

REACTIONS (5)
  - ASTERIXIS [None]
  - CONVULSION [None]
  - DEPRESSED LEVEL OF CONSCIOUSNESS [None]
  - FRACTURE [None]
  - METABOLIC ENCEPHALOPATHY [None]
